FAERS Safety Report 7319949-5 (Version None)
Quarter: 2011Q1

REPORT INFORMATION
  Report Type: 
  Country: None (occurrence: None)
  Receive Date: 20110228
  Receipt Date: 20101223
  Transmission Date: 20110831
  Serious: No
  Sender: FDA-Public Use
  Company Number: A0901419A

PATIENT
  Age: 53 Year
  Sex: Female

DRUGS (10)
  1. MULTI-VITAMIN [Concomitant]
  2. L-CARNITINE [Concomitant]
  3. FISH OILS [Concomitant]
  4. VITAMIN D [Concomitant]
  5. LAMICTAL [Suspect]
     Indication: BIPOLAR DISORDER
     Dosage: 150MG PER DAY
     Route: 048
     Dates: start: 20100701
  6. GEODON [Concomitant]
  7. LORAZEPAM [Concomitant]
  8. CO Q10 [Concomitant]
  9. MILK THISTLE [Concomitant]
  10. VITAMIN E [Concomitant]

REACTIONS (2)
  - DRUG INEFFECTIVE [None]
  - SINUSITIS [None]
